FAERS Safety Report 20708497 (Version 2)
Quarter: 2022Q2

REPORT INFORMATION
  Report Type: Spontaneous
  Country: US (occurrence: US)
  Receive Date: 20220414
  Receipt Date: 20220601
  Transmission Date: 20220721
  Serious: Yes (Death, Life-Threatening, Hospitalization, Other)
  Sender: FDA-Public Use
  Company Number: US-drreddys-SPO/USA/22/0148784

PATIENT
  Age: 61 Year
  Sex: Female

DRUGS (1)
  1. HEPARIN SODIUM [Suspect]
     Active Substance: HEPARIN SODIUM
     Indication: Product used for unknown indication

REACTIONS (5)
  - Vascular graft occlusion [Fatal]
  - Cardiac arrest [Fatal]
  - Transplant failure [Fatal]
  - Heparin-induced thrombocytopenia [Fatal]
  - Deep vein thrombosis [Fatal]
